FAERS Safety Report 17898371 (Version 5)
Quarter: 2021Q4

REPORT INFORMATION
  Report Type: Report from Study
  Country: DE (occurrence: DE)
  Receive Date: 20200615
  Receipt Date: 20211220
  Transmission Date: 20220303
  Serious: Yes (Death, Hospitalization, Other)
  Sender: FDA-Public Use
  Company Number: DE-BRISTOL-MYERS SQUIBB COMPANY-BMS-2019-085115

PATIENT
  Age: 66 Year
  Sex: Female

DRUGS (9)
  1. NIVOLUMAB [Suspect]
     Active Substance: NIVOLUMAB
     Indication: Malignant melanoma
     Dosage: 129 MILLIGRAM
     Route: 042
     Dates: start: 20181130, end: 20190122
  2. NIVOLUMAB [Suspect]
     Active Substance: NIVOLUMAB
     Dosage: 132 MILLIGRAM
     Route: 042
     Dates: start: 20190214, end: 20190228
  3. NIVOLUMAB [Suspect]
     Active Substance: NIVOLUMAB
     Dosage: 129 MILLIGRAM
     Route: 042
     Dates: start: 20190314, end: 20190401
  4. NIVOLUMAB [Suspect]
     Active Substance: NIVOLUMAB
     Dosage: 129 MILLIGRAM
     Route: 042
     Dates: start: 20190423, end: 20190801
  5. NIVOLUMAB [Suspect]
     Active Substance: NIVOLUMAB
     Dosage: 42 MILLIGRAM, Q4WK
     Route: 042
     Dates: end: 20200303
  6. IPILIMUMAB [Suspect]
     Active Substance: IPILIMUMAB
     Indication: Malignant melanoma
     Dosage: 4 MILLIGRAM
     Route: 065
     Dates: start: 20191210, end: 20200303
  7. BRAFTOVI [Suspect]
     Active Substance: ENCORAFENIB
     Indication: Malignant melanoma
     Dosage: UNK
     Route: 065
     Dates: start: 202003, end: 20200416
  8. MEKTOVI [Suspect]
     Active Substance: BINIMETINIB
     Indication: Malignant melanoma
     Dosage: UNK
     Route: 065
     Dates: start: 202003, end: 20200416
  9. PREDNISOLONE [Concomitant]
     Active Substance: PREDNISOLONE
     Indication: Product used for unknown indication
     Dosage: UNK
     Route: 065

REACTIONS (15)
  - Malignant neoplasm progression [Fatal]
  - Optic nerve disorder [Unknown]
  - Dry eye [Unknown]
  - Blindness [Unknown]
  - Dyschromatopsia [Unknown]
  - Giant cell arteritis [Unknown]
  - Influenza like illness [Recovered/Resolved]
  - Oropharyngeal pain [Unknown]
  - Ear pain [Unknown]
  - Peripheral motor neuropathy [Recovering/Resolving]
  - Fatigue [Unknown]
  - Diarrhoea [Recovering/Resolving]
  - Weight decreased [Unknown]
  - Jaw disorder [Unknown]
  - Rash [Unknown]

NARRATIVE: CASE EVENT DATE: 20190813
